FAERS Safety Report 21564103 (Version 1)
Quarter: 2022Q4

REPORT INFORMATION
  Report Type: Spontaneous
  Country: US (occurrence: US)
  Receive Date: 20221108
  Receipt Date: 20221108
  Transmission Date: 20230113
  Serious: Yes (Death, Other)
  Sender: FDA-Public Use
  Company Number: US-KYOWAKIRIN-2022AKK016916

PATIENT
  Sex: Male

DRUGS (1)
  1. DARBEPOETIN ALFA [Suspect]
     Active Substance: DARBEPOETIN ALFA
     Indication: Chronic kidney disease
     Dosage: 60 MUG (30-160 MUG)
     Route: 065

REACTIONS (25)
  - Death [Fatal]
  - Cardiac failure [Unknown]
  - Cardiomyopathy [Unknown]
  - Erosive oesophagitis [Unknown]
  - Retinopathy proliferative [Unknown]
  - Macular oedema [Unknown]
  - Choroidal neovascularisation [Unknown]
  - Embolism [Unknown]
  - Thrombosis [Unknown]
  - Myocardial infarction [Unknown]
  - Cerebrovascular accident [Unknown]
  - Gastritis erosive [Unknown]
  - Diarrhoea [Unknown]
  - Hypervolaemia [Unknown]
  - Upper respiratory tract infection [Unknown]
  - Hypotension [Unknown]
  - Muscle spasms [Unknown]
  - Nasopharyngitis [Unknown]
  - Ischaemia [Unknown]
  - Neoplasm progression [Unknown]
  - Neoplasm recurrence [Unknown]
  - Hypertension [Unknown]
  - Dialysis hypotension [Unknown]
  - Hypertension [Unknown]
  - Headache [Unknown]
